FAERS Safety Report 5711303-2 (Version None)
Quarter: 2008Q2

REPORT INFORMATION
  Report Type: 
  Country: None (occurrence: None)
  Receive Date: 20080418
  Receipt Date: 20080418
  Transmission Date: 20081010
  Serious: No
  Sender: FDA-Public Use
  Company Number: None

PATIENT
  Age: 49 Year
  Sex: Male
  Weight: 65.7716 kg

DRUGS (2)
  1. CHANTIX [Suspect]
     Indication: SMOKING CESSATION THERAPY
     Dosage: 1 MG DAILY PO
     Route: 048
     Dates: start: 20070828, end: 20070918
  2. CHANTIX [Suspect]
     Indication: SMOKING CESSATION THERAPY
     Dosage: 1 MG DAILY PO
     Route: 048
     Dates: start: 20071009, end: 20080218

REACTIONS (3)
  - ABNORMAL DREAMS [None]
  - FOOD CRAVING [None]
  - HYPOKALAEMIA [None]
